FAERS Safety Report 19358462 (Version 3)
Quarter: 2021Q3

REPORT INFORMATION
  Report Type: Spontaneous
  Country: CA (occurrence: CA)
  Receive Date: 20210602
  Receipt Date: 20210713
  Transmission Date: 20211014
  Serious: Yes (Other)
  Sender: FDA-Public Use
  Company Number: CA-ORION CORPORATION ORION PHARMA-21_00014625

PATIENT
  Age: 38 Year
  Sex: Female
  Weight: 97.51 kg

DRUGS (17)
  1. MULTIVITAMINS;MINERALS [Concomitant]
     Active Substance: MINERALS\VITAMINS
     Route: 065
  2. FERROUS GLUCONATE [Concomitant]
     Active Substance: FERROUS GLUCONATE
     Route: 065
  3. HYDROMORPHONE [Concomitant]
     Active Substance: HYDROMORPHONE
     Route: 065
  4. VITAMIN D [COLECALCIFEROL] [Concomitant]
     Active Substance: CHOLECALCIFEROL
     Route: 065
  5. FOLIC ACID. [Concomitant]
     Active Substance: FOLIC ACID
     Route: 065
  6. AMLODIPINE [Concomitant]
     Active Substance: AMLODIPINE BESYLATE
     Route: 065
  7. MIRTAZAPINE. [Concomitant]
     Active Substance: MIRTAZAPINE
     Route: 065
  8. BACLOFEN. [Concomitant]
     Active Substance: BACLOFEN
     Route: 065
  9. DOCUSATE SODIUM. [Concomitant]
     Active Substance: DOCUSATE SODIUM
     Route: 065
  10. INDOMETHACIN [INDOMETACIN] [Concomitant]
     Active Substance: INDOMETHACIN
     Route: 065
  11. PREGABALIN. [Concomitant]
     Active Substance: PREGABALIN
     Route: 065
  12. RABEPRAZOLE [Concomitant]
     Active Substance: RABEPRAZOLE
     Route: 065
  13. LEVOTHYROXIN [Concomitant]
     Active Substance: LEVOTHYROXINE
     Route: 065
  14. DULOXETINE HCL [Concomitant]
     Active Substance: DULOXETINE HYDROCHLORIDE
     Route: 065
  15. METHOTREXATE (TRADE NAME UNKNOWN) [Suspect]
     Active Substance: METHOTREXATE
     Indication: CROHN^S DISEASE
     Route: 065
     Dates: start: 202011
  16. METHADONE [Concomitant]
     Active Substance: METHADONE HYDROCHLORIDE
     Route: 065
  17. CALCIUM CARBONATE. [Concomitant]
     Active Substance: CALCIUM CARBONATE
     Route: 065

REACTIONS (7)
  - Product use in unapproved indication [Unknown]
  - Haemorrhage [Unknown]
  - Back pain [Recovering/Resolving]
  - Memory impairment [Unknown]
  - Weight decreased [Unknown]
  - Neuralgia [Not Recovered/Not Resolved]
  - Pain [Unknown]
